FAERS Safety Report 20773574 (Version 1)
Quarter: 2022Q2

REPORT INFORMATION
  Report Type: Spontaneous
  Country: SE (occurrence: SE)
  Receive Date: 20220502
  Receipt Date: 20220502
  Transmission Date: 20220721
  Serious: Yes (Other)
  Sender: FDA-Public Use
  Company Number: None

PATIENT
  Age: 78 Year
  Sex: Female

DRUGS (19)
  1. ACLASTA [Suspect]
     Active Substance: ZOLEDRONIC ACID
     Indication: Osteoporosis
     Dosage: UNK
     Route: 042
     Dates: start: 20220307, end: 20220307
  2. GLYTRIN [Concomitant]
     Indication: Product used for unknown indication
     Dosage: 1 UNK, PRN (1 SPRAYDOS VID BEHOV)
     Route: 060
     Dates: start: 20180321
  3. BISOPROLOL [Concomitant]
     Active Substance: BISOPROLOL
     Indication: Product used for unknown indication
     Dosage: UNK (1 PLUS 0.5 ST)
     Route: 065
     Dates: start: 20210818
  4. SYMBICORT [Concomitant]
     Active Substance: BUDESONIDE\FORMOTEROL FUMARATE DIHYDRATE
     Indication: Product used for unknown indication
     Dosage: UNK (UNDER MER BESV?RLIGA PERIODER I IST?LLET F?R PULMICORT, 1+0+1 PUFF, MAX 2 PUFFAR MORGON OCH KVA
     Route: 065
     Dates: start: 20170102
  5. ACETAMINOPHEN [Concomitant]
     Active Substance: ACETAMINOPHEN
     Indication: Product used for unknown indication
     Dosage: 1 UNK, PRN (2 TABLETTER VID BEHOV. MAX 8 ST PER DYGN)
     Route: 065
     Dates: start: 20160705
  6. HYDROXOCOBALAMIN ALTERNOVA [Concomitant]
     Indication: Product used for unknown indication
     Dosage: 1 UNK (1 INJEKTION VAR 12:E VECKA)
     Route: 065
     Dates: start: 20210503
  7. CARBOMER [Concomitant]
     Active Substance: CARBOMER
     Indication: Product used for unknown indication
     Dosage: UNK (1X3)
     Route: 065
     Dates: start: 20200828
  8. BION TEARS [Concomitant]
     Active Substance: DEXTRAN 70\HYPROMELLOSE 2910 (4000 MPA.S)
     Indication: Product used for unknown indication
     Dosage: UNK (1X3)
     Route: 065
     Dates: start: 20140913
  9. PREDNISOLONE [Concomitant]
     Active Substance: PREDNISOLONE
     Indication: Product used for unknown indication
     Dosage: UNK (0,5X1)
     Route: 065
     Dates: start: 20150609
  10. ELIQUIS [Concomitant]
     Active Substance: APIXABAN
     Indication: Product used for unknown indication
     Dosage: UNK (1X2)
     Route: 065
     Dates: start: 20220307
  11. OXAZEPAM [Concomitant]
     Active Substance: OXAZEPAM
     Indication: Product used for unknown indication
     Dosage: 1 UNK, PRN (1-2 TABLETTER VID BEHOV. MAX 4 ST PER DYGN)
     Route: 065
     Dates: start: 20211125
  12. ESOMEPRAZOLE [Concomitant]
     Active Substance: ESOMEPRAZOLE
     Indication: Product used for unknown indication
     Dosage: UNK (1X1)
     Route: 065
     Dates: start: 20211103
  13. METOCLOPRAMIDE [Concomitant]
     Active Substance: METOCLOPRAMIDE
     Indication: Product used for unknown indication
     Dosage: 1 UNK, PRN (1 VB., MAX 2/DYGN)
     Route: 065
     Dates: start: 20211117
  14. CHOLECALCIFEROL [Concomitant]
     Active Substance: CHOLECALCIFEROL
     Indication: Product used for unknown indication
     Dosage: UNK (1X1)
     Route: 065
     Dates: start: 20200921
  15. NOVORAPID [Concomitant]
     Active Substance: INSULIN ASPART
     Indication: Product used for unknown indication
     Dosage: UNK
     Route: 065
     Dates: start: 20210406
  16. NASONEX [Concomitant]
     Active Substance: MOMETASONE FUROATE
     Indication: Product used for unknown indication
     Dosage: UNK (2 SPRAYDOSER PA MORGONEN I NASAN I VARDERA NASBORREN)
     Route: 065
     Dates: start: 20210301
  17. TRESIBA [Concomitant]
     Active Substance: INSULIN DEGLUDEC
     Indication: Product used for unknown indication
     Dosage: 23 IU, QD
     Route: 065
     Dates: start: 20200226
  18. PULMICORT TURBUHALER [Concomitant]
     Active Substance: BUDESONIDE
     Indication: Product used for unknown indication
     Dosage: UNK (1+1)
     Route: 065
     Dates: start: 20160203
  19. UREA [Concomitant]
     Active Substance: UREA
     Indication: Product used for unknown indication
     Dosage: 1 UNK, PRN (AS NECESAARY)
     Route: 065
     Dates: start: 20210727

REACTIONS (11)
  - Hypothermia [Not Recovered/Not Resolved]
  - Palpitations [Not Recovered/Not Resolved]
  - Nausea [Not Recovered/Not Resolved]
  - Hypertension [Not Recovered/Not Resolved]
  - Myalgia [Not Recovered/Not Resolved]
  - Hypersensitivity [Not Recovered/Not Resolved]
  - Pyrexia [Not Recovered/Not Resolved]
  - Chills [Not Recovered/Not Resolved]
  - Fatigue [Not Recovered/Not Resolved]
  - Arthralgia [Not Recovered/Not Resolved]
  - Headache [Not Recovered/Not Resolved]

NARRATIVE: CASE EVENT DATE: 20220301
